FAERS Safety Report 17676207 (Version 2)
Quarter: 2020Q2

REPORT INFORMATION
  Report Type: Spontaneous
  Country: IT (occurrence: IT)
  Receive Date: 20200416
  Receipt Date: 20200417
  Transmission Date: 20200714
  Serious: Yes (Other)
  Sender: FDA-Public Use
  Company Number: IT-TEVA-2020-IT-1224744

PATIENT
  Age: 71 Year
  Sex: Female

DRUGS (7)
  1. CICLOSPORIN [Suspect]
     Active Substance: CYCLOSPORINE
     Route: 065
  2. POTASSIUM KANRENOATE [Concomitant]
     Route: 065
  3. ACETYLSALICYLICACID [Concomitant]
     Route: 065
  4. RANITIDINE. [Concomitant]
     Active Substance: RANITIDINE
     Route: 065
  5. PREDNISOLONE. [Concomitant]
     Active Substance: PREDNISOLONE
     Route: 065
  6. BEDIOL (CANNABIDOL\DRONABINOL) [Interacting]
     Active Substance: CANNABIDIOL\.DELTA.8-TETRAHYDROCANNABINOL
     Indication: PAIN
     Route: 048
  7. METOPROLOL. [Concomitant]
     Active Substance: METOPROLOL
     Route: 065

REACTIONS (4)
  - Renal transplant failure [Unknown]
  - Drug interaction [Unknown]
  - Hallucination [Recovered/Resolved]
  - Nausea [Recovered/Resolved]
